FAERS Safety Report 17817366 (Version 2)
Quarter: 2020Q2

REPORT INFORMATION
  Report Type: Spontaneous
  Country: GB (occurrence: GB)
  Receive Date: 20200522
  Receipt Date: 20200611
  Transmission Date: 20200714
  Serious: Yes (Death, Hospitalization, Other)
  Sender: FDA-Public Use
  Company Number: GB-MYLANLABS-2020M1051245

PATIENT
  Age: 56 Year
  Sex: Male

DRUGS (18)
  1. LEVOTHYROXINE SODIUM. [Concomitant]
     Active Substance: LEVOTHYROXINE SODIUM
     Indication: HYPOTHYROIDISM
     Dosage: 50 MICROGRAM, QD
     Dates: start: 20200401, end: 20200501
  2. RAMIPRIL. [Concomitant]
     Active Substance: RAMIPRIL
     Indication: HYPERTENSION
     Dosage: 10 MILLIGRAM, QD
     Dates: start: 20200330
  3. HYOSCINE BUTYLBROMIDE [Concomitant]
     Active Substance: BUTYLSCOPOLAMINE BROMIDE
     Dosage: MAX 120MG IN 24 HOURS, 20MG/1ML
     Route: 058
     Dates: start: 20200430
  4. MIDAZOLAM. [Concomitant]
     Active Substance: MIDAZOLAM
     Indication: AGITATION
     Dosage: MAXIMUM 6 DOSES IN 24 HOURS, 10MG/2ML.
     Route: 058
     Dates: start: 20200403, end: 20200501
  5. MENTHOL. [Concomitant]
     Active Substance: MENTHOL
     Indication: ECZEMA
     Dosage: 2 DOSAGE FORM, QD
     Dates: start: 20200501
  6. AMIODARONE [Suspect]
     Active Substance: AMIODARONE
     Indication: VENTRICULAR EXTRASYSTOLES
     Dosage: 200 MILLIGRAM, QD (200MG ONCE DAILY, DOSE WAS REDUCED TO 100MG DAILY IN THE LAST 2 WEEKS)
     Route: 048
     Dates: start: 20190918, end: 20200414
  7. CHLORPHENAMINE [Concomitant]
     Active Substance: CHLORPHENIRAMINE MALEATE
     Indication: PRURITUS
     Dosage: MAXIMUM 3 TIMES DAILY.
     Dates: start: 20200501
  8. BISOPROLOL [Concomitant]
     Active Substance: BISOPROLOL
     Indication: HYPERTENSION
     Dosage: 2.5 MILLIGRAM, QD
     Dates: start: 20191011
  9. ONDANSETRON HYDROCHLORIDE. [Concomitant]
     Active Substance: ONDANSETRON HYDROCHLORIDE
     Indication: NAUSEA
     Dosage: 12 MILLIGRAM, QD
     Dates: start: 20200430, end: 20200501
  10. OXYCODONE [Concomitant]
     Active Substance: OXYCODONE
     Indication: PAIN
     Dosage: MAXIMUM HOURLY, 10MG/1ML
     Route: 058
     Dates: start: 20200430, end: 20200501
  11. ALFENTANIL. [Concomitant]
     Active Substance: ALFENTANIL
     Indication: ANALGESIC THERAPY
     Dosage: OVER 24 HOURS, 100MCG/2ML
     Dates: start: 20200501
  12. PARACETAMOL [Concomitant]
     Active Substance: ACETAMINOPHEN
     Indication: PAIN
     Dosage: MAXIMUM FOUR TIMES DAILY
     Dates: start: 20200429
  13. ENTRESTO [Concomitant]
     Active Substance: SACUBITRIL\VALSARTAN
     Indication: CARDIAC FAILURE
     Dosage: 49MG AND 51MG
     Dates: start: 20200116
  14. MIDAZOLAM. [Concomitant]
     Active Substance: MIDAZOLAM
     Dosage: MAXIMUM 6 DOSES IN 24 HOURS, 10MG/2ML
     Route: 058
     Dates: start: 20200501
  15. AMIODARONE [Suspect]
     Active Substance: AMIODARONE
     Dosage: 100 MILLIGRAM, QD
     Route: 048
     Dates: start: 20200414, end: 20200429
  16. FUROSEMIDE. [Concomitant]
     Active Substance: FUROSEMIDE
     Indication: CARDIAC FAILURE
     Dosage: 80 MILLIGRAM, QD
     Dates: start: 20191011
  17. OXYCODONE [Concomitant]
     Active Substance: OXYCODONE
     Dosage: MAXIMUM HOURLY, 10MG/1ML
     Route: 058
     Dates: start: 20200501
  18. LEVOMEPROMAZINE [Concomitant]
     Active Substance: LEVOMEPROMAZINE
     Indication: AGITATION
     Dosage: 2.5 MG WHEN REQUIRED 8-12 HOURLY CONTINUED THROUGHOUT ADMISSION
     Route: 058
     Dates: start: 20200430

REACTIONS (9)
  - Cardiac failure [Not Recovered/Not Resolved]
  - Chromaturia [Not Recovered/Not Resolved]
  - Renal impairment [Not Recovered/Not Resolved]
  - Drug-induced liver injury [Fatal]
  - Abnormal loss of weight [Not Recovered/Not Resolved]
  - Hepatorenal failure [Fatal]
  - Faeces pale [Not Recovered/Not Resolved]
  - Decreased appetite [Not Recovered/Not Resolved]
  - Jaundice [Not Recovered/Not Resolved]

NARRATIVE: CASE EVENT DATE: 20190918
